FAERS Safety Report 11171313 (Version 1)
Quarter: 2015Q2

REPORT INFORMATION
  Report Type: Spontaneous
  Country: US (occurrence: US)
  Receive Date: 20150608
  Receipt Date: 20150608
  Transmission Date: 20150821
  Serious: No
  Sender: FDA-Public Use
  Company Number: US-PFIZER INC-2015172179

PATIENT
  Age: 70 Year
  Sex: Male
  Weight: 103 kg

DRUGS (1)
  1. AMLODIPINE [Suspect]
     Active Substance: AMLODIPINE BESYLATE
     Dosage: 2 DF, DAILY (10 MG IN MORNING, 5 MG IN NIGHT)
     Route: 048

REACTIONS (3)
  - Intentional product misuse [Unknown]
  - Foreign body [Unknown]
  - Throat irritation [Unknown]
